FAERS Safety Report 6503020-6 (Version None)
Quarter: 2009Q4

REPORT INFORMATION
  Report Type: 
  Country: None (occurrence: None)
  Receive Date: 20091127
  Receipt Date: 20090723
  Transmission Date: 20100525
  Serious: Yes (Other)
  Sender: FDA-Public Use
  Company Number: WAES 0907USA04004

PATIENT
  Age: 70 Year
  Sex: Female

DRUGS (6)
  1. FOSAMAX [Suspect]
     Indication: OSTEOPOROSIS PROPHYLAXIS
     Dosage: PO;70 MG/WKY/PO
     Route: 048
     Dates: start: 20020101, end: 20070622
  2. FOSAMAX [Suspect]
     Indication: OSTEOSCLEROSIS
     Dosage: PO;70 MG/WKY/PO
     Route: 048
     Dates: start: 20020101, end: 20070622
  3. FOSAMAX [Suspect]
     Indication: OSTEOPOROSIS PROPHYLAXIS
     Dosage: PO;70 MG/WKY/PO
     Route: 048
     Dates: start: 19970601
  4. FOSAMAX [Suspect]
     Indication: OSTEOSCLEROSIS
     Dosage: PO;70 MG/WKY/PO
     Route: 048
     Dates: start: 19970601
  5. FOSINOPRIL SODIUM [Concomitant]
  6. METOPROLOL TARTRATE [Concomitant]

REACTIONS (7)
  - BLOOD CHOLESTEROL INCREASED [None]
  - BREATH ODOUR [None]
  - DENTAL CARIES [None]
  - IMPAIRED HEALING [None]
  - ORAL INFECTION [None]
  - OSTEOMYELITIS [None]
  - OSTEONECROSIS [None]
